FAERS Safety Report 5105236-2 (Version None)
Quarter: 2006Q3

REPORT INFORMATION
  Report Type: 
  Country: None (occurrence: None)
  Receive Date: 20060911
  Receipt Date: 20060828
  Transmission Date: 20061208
  Serious: Yes (Death)
  Sender: FDA-Public Use
  Company Number: 008359

PATIENT
  Age: 47 Year
  Sex: Male

DRUGS (1)
  1. CLARAVIS [Suspect]
     Indication: DRUG USE FOR UNKNOWN INDICATION
     Dosage: ORAL
     Route: 048
     Dates: start: 20060705, end: 20060101

REACTIONS (1)
  - BRAIN NEOPLASM MALIGNANT [None]
